FAERS Safety Report 6163245-9 (Version None)
Quarter: 2009Q2

REPORT INFORMATION
  Report Type: 
  Country: None (occurrence: None)
  Receive Date: 20090422
  Receipt Date: 20080624
  Transmission Date: 20091009
  Serious: No
  Sender: FDA-Public Use
  Company Number: A0735852A

PATIENT
  Sex: Female

DRUGS (2)
  1. COMPAZINE [Suspect]
     Indication: DRUG USE FOR UNKNOWN INDICATION
     Route: 065
  2. INAPSINE [Suspect]
     Indication: DRUG USE FOR UNKNOWN INDICATION
     Route: 065

REACTIONS (1)
  - SWOLLEN TONGUE [None]
